FAERS Safety Report 4720735-0 (Version None)
Quarter: 2005Q3

REPORT INFORMATION
  Report Type: 
  Country: None (occurrence: None)
  Receive Date: 20050721
  Receipt Date: 20050715
  Transmission Date: 20060218
  Serious: Yes (Hospitalization)
  Sender: FDA-Public Use
  Company Number: JP-GLAXOSMITHKLINE-B0388054A

PATIENT
  Sex: Male

DRUGS (4)
  1. PAXIL [Suspect]
     Dosage: 40MG PER DAY
     Dates: end: 20050713
  2. HIRNAMIN [Concomitant]
  3. MYSLEE [Concomitant]
  4. LEXOTAN [Concomitant]

REACTIONS (2)
  - DRUG EXPOSURE DURING PREGNANCY [None]
  - DRUG WITHDRAWAL SYNDROME [None]
